FAERS Safety Report 19898902 (Version 1)
Quarter: 2021Q3

REPORT INFORMATION
  Report Type: Spontaneous
  Country: NL (occurrence: NL)
  Receive Date: 20210929
  Receipt Date: 20210929
  Transmission Date: 20211014
  Serious: Yes (Life-Threatening, Hospitalization, Other)
  Sender: FDA-Public Use
  Company Number: NL-ASTRAZENECA-2021A745915

PATIENT
  Age: 49 Year
  Sex: Female
  Weight: 49 kg

DRUGS (16)
  1. FORMOTEROL [Concomitant]
     Active Substance: FORMOTEROL
     Dosage: 1X PER DAY 12 MICROGRAMS12UG/INHAL DAILY
     Route: 065
  2. LEVOTHYROXINE. [Concomitant]
     Active Substance: LEVOTHYROXINE
     Dosage: 1X PER DAY 100 MICROGRAMS 100UG/INHAL DAILY
     Route: 065
  3. FORXIGA [Suspect]
     Active Substance: DAPAGLIFLOZIN
     Indication: PRODUCT USED FOR UNKNOWN INDICATION
     Dosage: 1 X PER DAY 1 PIECE
     Route: 065
     Dates: start: 20210910, end: 20210913
  4. ACENOCOUMAROL [Concomitant]
     Active Substance: ACENOCOUMAROL
     Route: 065
  5. AMIODARON [Concomitant]
     Active Substance: AMIODARONE
     Dosage: 1? PER DAY 200 MG
     Route: 065
  6. SPIRONOLACTONE. [Concomitant]
     Active Substance: SPIRONOLACTONE
     Dosage: 1X PER DAY 50 MILLIGRAMS
     Route: 065
  7. HYDRALAZINE [Concomitant]
     Active Substance: HYDRALAZINE HYDROCHLORIDE
     Dosage: 3X A DAY 12.5 MILLIGRAMS
     Route: 065
  8. ISOSORBIDE DINITRATE. [Concomitant]
     Active Substance: ISOSORBIDE DINITRATE
     Dosage: 3X A DAY 20 MILLIGRAMS
     Route: 065
  9. DIGOXINE [Concomitant]
     Active Substance: DIGOXIN
     Dosage: 1 PIECE EVERY OTHER DAY
     Route: 065
  10. PANTOPRAZOL [Concomitant]
     Active Substance: PANTOPRAZOLE SODIUM
     Dosage: 1? A DAY 40 MILLIGRAMS
     Route: 065
  11. TIOTROPIUM [Concomitant]
     Active Substance: TIOTROPIUM
     Dosage: 1 PER DAY 18 MICROGRAMS18UG/INHAL DAILY
     Route: 065
  12. BISOPROLOL [Concomitant]
     Active Substance: BISOPROLOL
     Dosage: 2X A DAY 2.5MG
     Route: 065
  13. BUMETANIDE. [Concomitant]
     Active Substance: BUMETANIDE
     Dosage: 5 MILLIGRAMS 3 TIMES A DAY
     Route: 065
  14. ETHINYLESTRADIOL/LEVONORGESTREL [Concomitant]
     Active Substance: ETHINYL ESTRADIOL\LEVONORGESTREL
     Dosage: 30/150UG
     Route: 065
  15. BUDESONIDE. [Concomitant]
     Active Substance: BUDESONIDE
     Dosage: 2 ? A DAY 400 MICROGRAMS400UG/INHAL EVERY 12 HOURS
     Route: 065
  16. LEVOSIMENDAN [Concomitant]
     Active Substance: LEVOSIMENDAN
     Dosage: SOLUTION FOR INFUSION, 2.5 MG/ML (MILLIGRAMS PER MILLILITERS)
     Route: 065

REACTIONS (1)
  - Aortic embolus [Recovering/Resolving]

NARRATIVE: CASE EVENT DATE: 20210913
